FAERS Safety Report 11971573 (Version 2)
Quarter: 2017Q1

REPORT INFORMATION
  Report Type: Spontaneous
  Country: US (occurrence: US)
  Receive Date: 20160128
  Receipt Date: 20170109
  Transmission Date: 20170428
  Serious: Yes (Other)
  Sender: FDA-Public Use
  Company Number: US-PFIZER INC-2016044751

PATIENT
  Age: 60 Year
  Sex: Male
  Weight: 72.56 kg

DRUGS (16)
  1. CYMBALTA [Suspect]
     Active Substance: DULOXETINE HYDROCHLORIDE
     Indication: PAIN
  2. LISINOPRIL AND HYDROCHLOROTHIAZIDE [Concomitant]
     Active Substance: HYDROCHLOROTHIAZIDE\LISINOPRIL
     Indication: BLOOD PRESSURE MEASUREMENT
     Dosage: UNK, 1X/DAY (ONCE DAILY) [HYDROCHLOROTHIAZIDE: 20MG, LISINOPRIL DIHYDRATE:25 MG]
  3. OXYCODONE [Concomitant]
     Active Substance: OXYCODONE
     Indication: PAIN
     Dosage: 1 DF, THREE TIMES DAILY
  4. IPRATROPIUM [Concomitant]
     Active Substance: IPRATROPIUM
     Indication: DYSPNOEA
     Dosage: 1 DF, 4X/DAY (ONE AMPULE)
  5. LYRICA [Suspect]
     Active Substance: PREGABALIN
     Indication: CENTRAL PAIN SYNDROME
     Dosage: 75 MG, 3X/DAY
     Route: 048
     Dates: start: 2011
  6. CYMBALTA [Suspect]
     Active Substance: DULOXETINE HYDROCHLORIDE
     Indication: CENTRAL PAIN SYNDROME
     Dosage: 60 MG, TWICE A DAY
     Route: 048
  7. CYMBALTA [Suspect]
     Active Substance: DULOXETINE HYDROCHLORIDE
     Indication: MOOD ALTERED
  8. DICLOFENAC [Concomitant]
     Active Substance: DICLOFENAC
     Dosage: 100 MG, DAILY
  9. OXYCODONE [Concomitant]
     Active Substance: OXYCODONE
     Dosage: UNK, 4X/DAY
  10. TAMSULOSIN [Concomitant]
     Active Substance: TAMSULOSIN
     Indication: RENAL DISORDER
     Dosage: 0.4 MG, 1X/DAY
  11. LYRICA [Suspect]
     Active Substance: PREGABALIN
     Dosage: 100 MG, 3X/DAY
     Route: 048
     Dates: start: 2014
  12. LACTULOSE. [Concomitant]
     Active Substance: LACTULOSE
     Indication: ABDOMINAL DISCOMFORT
     Dosage: 1 DF, ONCE A DAY (1 TABLESPOON, STARTED ABOUT 3 YEARS AGO)
  13. PROAIR HFA [Concomitant]
     Active Substance: ALBUTEROL SULFATE
     Indication: DYSPNOEA
     Dosage: 2 DF, EVERY 4 HRS (AS NEEDED)
  14. PREDNISONE. [Concomitant]
     Active Substance: PREDNISONE
     Indication: DYSPNOEA
     Dosage: 5 MG, DAILY
  15. MORPHINE SULFATE ER [Concomitant]
     Active Substance: MORPHINE SULFATE
     Indication: PAIN
     Dosage: 30 MG, TWICE DAILY
  16. LYRICA [Suspect]
     Active Substance: PREGABALIN
     Indication: PAIN
     Dosage: 100 MG, 3X/DAY
     Route: 048

REACTIONS (7)
  - Renal mass [Unknown]
  - Lung infection [Unknown]
  - Spinal fracture [Not Recovered/Not Resolved]
  - Malaise [Unknown]
  - Oxygen saturation decreased [Unknown]
  - Joint swelling [Not Recovered/Not Resolved]
  - Dyspnoea [Unknown]

NARRATIVE: CASE EVENT DATE: 201512
